FAERS Safety Report 25612348 (Version 3)
Quarter: 2025Q3

REPORT INFORMATION
  Report Type: Spontaneous
  Country: JP (occurrence: JP)
  Receive Date: 20250728
  Receipt Date: 20250804
  Transmission Date: 20251021
  Serious: Yes (Life-Threatening, Hospitalization, Other)
  Sender: PFIZER
  Company Number: JP-MLMSERVICE-20250717-PI583152-00270-1

PATIENT
  Age: 73 Year
  Sex: Female
  Weight: 59 kg

DRUGS (2)
  1. METHYLPREDNISOLONE SODIUM SUCCINATE [Suspect]
     Active Substance: METHYLPREDNISOLONE SODIUM SUCCINATE
     Indication: Nephrotic syndrome
     Dosage: 500 MG, 1X/DAY, PULSE THERAPY
     Route: 042
  2. PREDNISOLONE [Suspect]
     Active Substance: PREDNISOLONE
     Dosage: 10 MG, 1X/DAY
     Route: 048

REACTIONS (7)
  - Aneurysm ruptured [Recovered/Resolved]
  - Aneurysm [Recovered/Resolved]
  - Segmental arterial mediolysis [Recovered/Resolved]
  - Intra-abdominal haematoma [Recovered/Resolved]
  - Mediastinal haematoma [Recovered/Resolved]
  - Intra-abdominal haemorrhage [Recovered/Resolved]
  - Dysphagia [Recovered/Resolved]
